FAERS Safety Report 25915334 (Version 1)
Quarter: 2025Q4

REPORT INFORMATION
  Report Type: Spontaneous
  Country: US (occurrence: US)
  Receive Date: 20251013
  Receipt Date: 20251013
  Transmission Date: 20260119
  Serious: No
  Sender: ANI
  Company Number: US-ANIPHARMA-2025-US-031553

PATIENT
  Age: 36 Year
  Sex: Female

DRUGS (1)
  1. CORTICOTROPIN [Suspect]
     Active Substance: CORTICOTROPIN
     Indication: Multiple sclerosis relapse
     Dosage: 40 UNITS 3X WEEKLY
     Route: 058
     Dates: start: 20250623, end: 202506

REACTIONS (2)
  - Injection site pruritus [Recovering/Resolving]
  - Injection site swelling [Recovering/Resolving]

NARRATIVE: CASE EVENT DATE: 20250623
